FAERS Safety Report 6813451-2 (Version None)
Quarter: 2010Q3

REPORT INFORMATION
  Report Type: 
  Country: None (occurrence: None)
  Receive Date: 20100701
  Receipt Date: 20100622
  Transmission Date: 20110219
  Serious: Yes (Other)
  Sender: FDA-Public Use
  Company Number: US-JNJFOC-20100608020

PATIENT
  Age: 10 Year
  Sex: Male

DRUGS (2)
  1. CHILDREN'S MOTRIN COLD [Suspect]
     Route: 048
  2. CHILDREN'S MOTRIN COLD [Suspect]
     Indication: COUGH
     Route: 048

REACTIONS (6)
  - ANGINA PECTORIS [None]
  - COLD SWEAT [None]
  - FEELING JITTERY [None]
  - MYDRIASIS [None]
  - PRODUCT QUALITY ISSUE [None]
  - RESTLESSNESS [None]
